FAERS Safety Report 15283356 (Version 1)
Quarter: 2018Q3

REPORT INFORMATION
  Report Type: Spontaneous
  Country: US (occurrence: US)
  Receive Date: 20180816
  Receipt Date: 20180816
  Transmission Date: 20181010
  Serious: No
  Sender: FDA-Public Use
  Company Number: US-PFIZER INC-2018326135

PATIENT
  Age: 44 Year
  Sex: Female

DRUGS (1)
  1. XELJANZ XR [Suspect]
     Active Substance: TOFACITINIB CITRATE
     Indication: RHEUMATOID ARTHRITIS
     Dosage: 11 MG, DAILY (TAKE 1 TABLET BY MOUTH)
     Route: 048
     Dates: start: 20180802

REACTIONS (7)
  - Abdominal pain [Unknown]
  - Defaecation urgency [Unknown]
  - Liver function test increased [Unknown]
  - Diarrhoea [Unknown]
  - Chest pain [Unknown]
  - Flatulence [Unknown]
  - Faeces hard [Unknown]

NARRATIVE: CASE EVENT DATE: 201808
